FAERS Safety Report 25334660 (Version 1)
Quarter: 2025Q2

REPORT INFORMATION
  Report Type: Spontaneous
  Country: FR (occurrence: FR)
  Receive Date: 20250520
  Receipt Date: 20250520
  Transmission Date: 20250717
  Serious: Yes (Hospitalization)
  Sender: CHEPLAPHARM
  Company Number: None

PATIENT
  Age: 43 Year
  Sex: Male

DRUGS (7)
  1. CLONAZEPAM [Suspect]
     Active Substance: CLONAZEPAM
  2. CANNABIS SATIVA SUBSP. INDICA TOP [Suspect]
     Active Substance: CANNABIS SATIVA SUBSP. INDICA TOP
  3. COCAINE [Suspect]
     Active Substance: COCAINE
  4. TRAMADOL HYDROCHLORIDE [Suspect]
     Active Substance: TRAMADOL HYDROCHLORIDE
  5. DIAZEPAM [Suspect]
     Active Substance: DIAZEPAM
  6. PREGABALIN [Suspect]
     Active Substance: PREGABALIN
  7. ALCOHOL [Suspect]
     Active Substance: ALCOHOL

REACTIONS (7)
  - Drug use disorder [Unknown]
  - Suicide attempt [Recovered/Resolved]
  - Confusional state [Recovered/Resolved]
  - Hypothermia [Unknown]
  - Head injury [Unknown]
  - Mydriasis [Recovered/Resolved]
  - Back pain [Unknown]

NARRATIVE: CASE EVENT DATE: 20250212
